FAERS Safety Report 21425408 (Version 1)
Quarter: 2022Q4

REPORT INFORMATION
  Report Type: Report from Study
  Country: CA (occurrence: CA)
  Receive Date: 20221008
  Receipt Date: 20221008
  Transmission Date: 20230113
  Serious: Yes (Other)
  Sender: FDA-Public Use
  Company Number: CA-ABBVIE-4143803

PATIENT
  Age: 36 Year
  Sex: Male

DRUGS (7)
  1. SKYRIZI [Suspect]
     Active Substance: RISANKIZUMAB-RZAA
     Indication: Psoriasis
     Route: 058
     Dates: start: 20220217, end: 20220319
  2. SKYRIZI [Suspect]
     Active Substance: RISANKIZUMAB-RZAA
     Route: 058
     Dates: start: 20220319
  3. Fucidin HC [Concomitant]
     Indication: Psoriasis
     Dosage: TOPIC/SKIN/DERMAL SPRAY
     Dates: start: 20191105
  4. PROTOPIC [Concomitant]
     Active Substance: TACROLIMUS
     Indication: Psoriasis
     Dates: start: 20191004
  5. Clobetasol Scalp Lotion [Concomitant]
     Indication: Psoriasis
     Dosage: 1 APPLICATION; TOPIC/SKIN/DERMAL SPRAY
     Dates: start: 20191007
  6. CLOBETASOL [Concomitant]
     Active Substance: CLOBETASOL
     Indication: Psoriasis
     Dosage: TOPIC/SKIN/DERMAL SPRAY; VASELINE
     Dates: start: 20191004
  7. CIPROFLOXACIN [Concomitant]
     Active Substance: CIPROFLOXACIN
     Indication: Eye infection
     Dosage: SOLUTION
     Route: 047
     Dates: start: 20220201, end: 20220207

REACTIONS (1)
  - Nodule [Recovered/Resolved]

NARRATIVE: CASE EVENT DATE: 20220101
